FAERS Safety Report 17308066 (Version 1)
Quarter: 2020Q1

REPORT INFORMATION
  Report Type: Spontaneous
  Country: US (occurrence: US)
  Receive Date: 20200123
  Receipt Date: 20200123
  Transmission Date: 20200409
  Serious: No
  Sender: FDA-Public Use
  Company Number: US-TEVA-2020-US-1173973

PATIENT
  Sex: Female

DRUGS (4)
  1. ESTRADIOL TABLET [Suspect]
     Active Substance: ESTRADIOL
     Indication: IN VITRO FERTILISATION
     Dosage: 2 MILLIGRAM DAILY; BLUE WITH B/887/2 IMPRINTED
     Route: 048
     Dates: start: 20191130
  2. PROGESTERONE. [Concomitant]
     Active Substance: PROGESTERONE
     Indication: IN VITRO FERTILISATION
     Dosage: 800 MICROGRAM DAILY; COMPOUNDED SUPPOSITORIES
     Route: 054
     Dates: start: 201911
  3. NATURE-THROID [Concomitant]
     Active Substance: THYROID, PORCINE
     Indication: HYPOTHYROIDISM
  4. PROGESTERONE. [Concomitant]
     Active Substance: PROGESTERONE
     Dosage: 1-1.5 MG EVERY OTHER DAY
     Route: 030
     Dates: start: 201912

REACTIONS (3)
  - Urticaria [Recovering/Resolving]
  - Rash [Recovering/Resolving]
  - Pruritus [Recovering/Resolving]
